FAERS Safety Report 10724770 (Version 1)
Quarter: 2015Q1

REPORT INFORMATION
  Report Type: Spontaneous
  Country: US (occurrence: US)
  Receive Date: 20150120
  Receipt Date: 20150120
  Transmission Date: 20150721
  Serious: Yes (Hospitalization, Other)
  Sender: FDA-Public Use
  Company Number: US-JNJFOC-20150108374

PATIENT
  Age: 53 Year
  Sex: Female
  Weight: 68.04 kg

DRUGS (3)
  1. ADVIL [Concomitant]
     Active Substance: IBUPROFEN
     Indication: PAIN IN EXTREMITY
     Route: 048
  2. REMICADE [Suspect]
     Active Substance: INFLIXIMAB
     Indication: BIRDSHOT CHORIORETINOPATHY
     Route: 042
     Dates: start: 2012, end: 201410
  3. ALEVE [Concomitant]
     Active Substance: NAPROXEN SODIUM
     Indication: PAIN IN EXTREMITY
     Route: 048

REACTIONS (5)
  - Incorrect dose administered [Unknown]
  - Lupus-like syndrome [Recovering/Resolving]
  - Product use issue [Unknown]
  - Knee arthroplasty [Unknown]
  - Toothache [Recovered/Resolved]

NARRATIVE: CASE EVENT DATE: 2012
